FAERS Safety Report 15696379 (Version 1)
Quarter: 2018Q4

REPORT INFORMATION
  Report Type: Other
  Country: CA (occurrence: CA)
  Receive Date: 20181206
  Receipt Date: 20181206
  Transmission Date: 20190205
  Serious: Yes (Other)
  Sender: FDA-Public Use
  Company Number: CA-HLSUS-2018-CA-001676

PATIENT
  Age: 28 Year
  Sex: Female

DRUGS (1)
  1. CLOZARIL [Suspect]
     Active Substance: CLOZAPINE
     Route: 048
     Dates: start: 20130222

REACTIONS (6)
  - Confusional state [None]
  - Salivary hypersecretion [None]
  - Nausea [None]
  - Headache [None]
  - Gastroenteritis [Recovered/Resolved]
  - Hyperhidrosis [None]

NARRATIVE: CASE EVENT DATE: 201806
